FAERS Safety Report 12477960 (Version 2)
Quarter: 2016Q2

REPORT INFORMATION
  Report Type: Spontaneous
  Country: JP (occurrence: JP)
  Receive Date: 20160617
  Receipt Date: 20160623
  Transmission Date: 20160815
  Serious: Yes (Hospitalization, Other)
  Sender: FDA-Public Use
  Company Number: JP-BAYER-2016-114007

PATIENT
  Age: 88 Year
  Sex: Female

DRUGS (4)
  1. HUMALOG MIX [Concomitant]
     Active Substance: INSULIN LISPRO
     Indication: DIABETES MELLITUS MANAGEMENT
     Dosage: UNK
     Route: 058
  2. ACETYLSALICYLIC ACID({=100 MG) [Suspect]
     Active Substance: ASPIRIN
     Dosage: UNK
     Route: 048
  3. VOGLIBOSE [Concomitant]
     Active Substance: VOGLIBOSE
     Indication: DIABETES MELLITUS MANAGEMENT
     Dosage: UNK
     Route: 048
  4. CILOSTAZOL. [Interacting]
     Active Substance: CILOSTAZOL
     Dosage: UNK
     Route: 048

REACTIONS (3)
  - Haemoglobin decreased [None]
  - Subcutaneous haematoma [None]
  - Labelled drug-drug interaction medication error [None]
